FAERS Safety Report 16695403 (Version 1)
Quarter: 2019Q3

REPORT INFORMATION
  Report Type: Spontaneous
  Country: US (occurrence: US)
  Receive Date: 20190813
  Receipt Date: 20190813
  Transmission Date: 20191004
  Serious: Yes (Other)
  Sender: FDA-Public Use
  Company Number: US-ROCHE-2379223

PATIENT
  Sex: Male

DRUGS (10)
  1. METFORMIN HCL [Concomitant]
     Active Substance: METFORMIN HYDROCHLORIDE
  2. PRIMIDONE. [Concomitant]
     Active Substance: PRIMIDONE
  3. LIPITOR [Concomitant]
     Active Substance: ATORVASTATIN CALCIUM
  4. MELOXICAM. [Concomitant]
     Active Substance: MELOXICAM
  5. GUAIFENESIN/CODEINE [Concomitant]
     Active Substance: CODEINE PHOSPHATE\GUAIFENESIN
  6. TRULICITY [Concomitant]
     Active Substance: DULAGLUTIDE
  7. ESOMEPRAZOLE. [Concomitant]
     Active Substance: ESOMEPRAZOLE MAGNESIUM
  8. ESBRIET [Suspect]
     Active Substance: PIRFENIDONE
     Indication: ABDOMINAL HERNIA
     Dosage: WITH MEAL
     Route: 048
     Dates: start: 201809
  9. ASPIRIN 81 [Concomitant]
     Active Substance: ASPIRIN
  10. BENZONATATE. [Concomitant]
     Active Substance: BENZONATATE

REACTIONS (3)
  - Off label use [Unknown]
  - Intentional product use issue [Unknown]
  - Idiopathic pulmonary fibrosis [Not Recovered/Not Resolved]
